FAERS Safety Report 15619503 (Version 2)
Quarter: 2020Q3

REPORT INFORMATION
  Report Type: Spontaneous
  Country: CA (occurrence: CA)
  Receive Date: 20181115
  Receipt Date: 20200907
  Transmission Date: 20201102
  Serious: Yes (Other)
  Sender: FDA-Public Use
  Company Number: CA-JNJFOC-20181108874

PATIENT
  Age: 53 Year
  Weight: 50 kg

DRUGS (1)
  1. MOTRIN [Suspect]
     Active Substance: IBUPROFEN
     Indication: PRODUCT USED FOR UNKNOWN INDICATION
     Dosage: START PERIOD: 7 DAYS
     Route: 048
     Dates: start: 19810512

REACTIONS (3)
  - Coordination abnormal [Unknown]
  - Tongue oedema [Unknown]
  - Vision blurred [Unknown]

NARRATIVE: CASE EVENT DATE: 19810519
